FAERS Safety Report 5397774-2 (Version None)
Quarter: 2007Q3

REPORT INFORMATION
  Report Type: 
  Country: None (occurrence: None)
  Receive Date: 20070726
  Receipt Date: 20070716
  Transmission Date: 20080115
  Serious: Yes (Hospitalization)
  Sender: FDA-Public Use
  Company Number: B0480390A

PATIENT
  Age: 76 Year
  Sex: Male

DRUGS (11)
  1. FORTUM [Suspect]
     Indication: RESPIRATORY DISTRESS
     Route: 042
     Dates: start: 20070617, end: 20070702
  2. VANCOMYCIN [Suspect]
     Indication: RESPIRATORY DISTRESS
     Route: 042
     Dates: start: 20070528, end: 20070702
  3. DALACINE [Suspect]
     Indication: RESPIRATORY DISTRESS
     Route: 042
     Dates: start: 20070528
  4. CIFLOX [Suspect]
     Indication: SHOCK
     Dosage: 500MG THREE TIMES PER DAY
     Route: 050
  5. IRBESARTAN [Concomitant]
     Route: 065
  6. ESIDRIX [Concomitant]
     Route: 065
  7. LASIX [Concomitant]
     Route: 065
  8. LOGIMAX [Concomitant]
     Route: 065
  9. ATORVASTATIN CALCIUM [Concomitant]
     Route: 065
  10. TRIATEC [Concomitant]
     Route: 065
  11. ASPEGIC 325 [Concomitant]
     Route: 065

REACTIONS (2)
  - ANTIBIOTIC LEVEL ABOVE THERAPEUTIC [None]
  - GRAND MAL CONVULSION [None]
